FAERS Safety Report 17092751 (Version 1)
Quarter: 2019Q4

REPORT INFORMATION
  Report Type: Spontaneous
  Country: BR (occurrence: BR)
  Receive Date: 20191129
  Receipt Date: 20191129
  Transmission Date: 20200122
  Serious: Yes (Other)
  Sender: FDA-Public Use
  Company Number: BR-ASTRAZENECA-2019SF66858

PATIENT
  Age: 20 Year
  Sex: Male

DRUGS (3)
  1. LORATADINE. [Concomitant]
     Active Substance: LORATADINE
     Dosage: UNKNOWN
     Route: 065
  2. AVAMYS [Concomitant]
     Active Substance: FLUTICASONE FUROATE
     Dosage: UNKNOWN
     Route: 065
  3. SYMBICORT [Suspect]
     Active Substance: BUDESONIDE\FORMOTEROL FUMARATE DIHYDRATE
     Indication: ASTHMA
     Dosage: 4.5/160MCG, UNKNOWN UNKNOWN
     Route: 055

REACTIONS (2)
  - Asthmatic crisis [Unknown]
  - Drug ineffective [Unknown]
